FAERS Safety Report 5308366-5 (Version None)
Quarter: 2007Q2

REPORT INFORMATION
  Report Type: 
  Country: None (occurrence: None)
  Receive Date: 20070423
  Receipt Date: 20070410
  Transmission Date: 20071010
  Serious: Yes (Hospitalization)
  Sender: FDA-Public Use
  Company Number: 2007BI005537

PATIENT
  Age: 61 Year
  Sex: Female

DRUGS (7)
  1. AVONEX [Suspect]
     Indication: MULTIPLE SCLEROSIS
     Dosage: 22.5 UG; QW; IM
     Route: 030
     Dates: start: 20011001, end: 20040101
  2. AVONEX [Suspect]
     Indication: MULTIPLE SCLEROSIS
     Dosage: 30 UG; QW; IM
     Route: 030
     Dates: start: 20040101
  3. LEXAPRO [Concomitant]
  4. SYNTHROID [Concomitant]
  5. DITROPAN XL [Concomitant]
  6. PERI-COLACE [Concomitant]
  7. AVANDAMET [Concomitant]

REACTIONS (4)
  - ASTHENIA [None]
  - FALL [None]
  - JOINT INJURY [None]
  - STRESS [None]
